FAERS Safety Report 17452480 (Version 1)
Quarter: 2020Q1

REPORT INFORMATION
  Report Type: Spontaneous
  Country: US (occurrence: US)
  Receive Date: 20200224
  Receipt Date: 20200224
  Transmission Date: 20200409
  Serious: Yes (Other)
  Sender: FDA-Public Use
  Company Number: US-GLAXOSMITHKLINE-US2020GSK027847

PATIENT
  Age: 17 Year
  Sex: Female

DRUGS (2)
  1. ISOTRETINOIN. [Suspect]
     Active Substance: ISOTRETINOIN
     Indication: WOUND INFECTION
     Dosage: UNK
     Route: 048
  2. ACITRETIN. [Suspect]
     Active Substance: ACITRETIN
     Indication: WOUND INFECTION
     Dosage: UNK
     Route: 048

REACTIONS (9)
  - Condition aggravated [Recovering/Resolving]
  - Hyperplasia [Recovering/Resolving]
  - Subcorneal pustular dermatosis [Recovering/Resolving]
  - Congenital dyskeratosis [Recovering/Resolving]
  - Xanthoma [Recovering/Resolving]
  - Fungal skin infection [Recovering/Resolving]
  - Wound [Recovering/Resolving]
  - Skin plaque [Recovering/Resolving]
  - Hyperkeratosis [Recovering/Resolving]
